FAERS Safety Report 12935816 (Version 5)
Quarter: 2017Q1

REPORT INFORMATION
  Report Type: Report from Study
  Country: US (occurrence: US)
  Receive Date: 20161114
  Receipt Date: 20170127
  Transmission Date: 20170428
  Serious: Yes (Hospitalization)
  Sender: FDA-Public Use
  Company Number: US-GILEAD-2016-0242971

PATIENT
  Age: 75 Year
  Sex: Female

DRUGS (1)
  1. AMBRISENTAN [Suspect]
     Active Substance: AMBRISENTAN
     Indication: PRODUCT USED FOR UNKNOWN INDICATION
     Dosage: 10 MG, UNK
     Route: 065
     Dates: start: 20140826

REACTIONS (10)
  - Abasia [Unknown]
  - Malaise [Recovering/Resolving]
  - Arthritis [Unknown]
  - Unevaluable event [Unknown]
  - Arthralgia [Unknown]
  - Feeling abnormal [Unknown]
  - Movement disorder [Unknown]
  - Paranasal sinus discomfort [Unknown]
  - Vertebral lesion [Unknown]
  - Fall [Recovering/Resolving]

NARRATIVE: CASE EVENT DATE: 20161107
